FAERS Safety Report 6038884-6 (Version None)
Quarter: 2009Q1

REPORT INFORMATION
  Report Type: 
  Country: None (occurrence: None)
  Receive Date: 20090115
  Receipt Date: 20081215
  Transmission Date: 20090719
  Serious: No
  Sender: FDA-Public Use
  Company Number: US-ABBOTT-08P-163-0492438-00

PATIENT
  Sex: Male
  Weight: 63.56 kg

DRUGS (6)
  1. ADVICOR [Suspect]
     Indication: BLOOD CHOLESTEROL ABNORMAL
     Route: 048
     Dates: start: 20040101, end: 20070101
  2. ADVICOR [Suspect]
     Route: 048
     Dates: start: 20070101
  3. ACETYLSALICYLIC ACID SRT [Concomitant]
     Indication: DRUG USE FOR UNKNOWN INDICATION
     Dosage: 81 MG DAILY, EVERY MORNING
     Route: 048
     Dates: start: 20010101
  4. CALCIUM CARBONATE [Concomitant]
     Indication: MINERAL SUPPLEMENTATION
     Route: 048
  5. ACETAMINOPHEN [Concomitant]
     Indication: ARTHRALGIA
     Dosage: AS NEEDED, 4-5 TIMES PER WEEK
     Route: 048
  6. CENTRUM SILVER [Concomitant]
     Indication: VITAMIN SUPPLEMENTATION
     Route: 048

REACTIONS (1)
  - MUSCULOSKELETAL PAIN [None]
